FAERS Safety Report 21604965 (Version 2)
Quarter: 2022Q4

REPORT INFORMATION
  Report Type: Spontaneous
  Country: US (occurrence: US)
  Receive Date: 20221116
  Receipt Date: 20221223
  Transmission Date: 20230113
  Serious: No
  Sender: FDA-Public Use
  Company Number: US-SA-SAC20221114001316

PATIENT
  Sex: Female

DRUGS (1)
  1. DUPIXENT [Suspect]
     Active Substance: DUPILUMAB
     Dosage: 300 MG,  FREQUENCY: OTHER
     Route: 058

REACTIONS (3)
  - Alopecia [Unknown]
  - Cerebral cyst [Unknown]
  - Headache [Unknown]
